FAERS Safety Report 7493389-0 (Version None)
Quarter: 2011Q2

REPORT INFORMATION
  Report Type: 
  Country: None (occurrence: None)
  Receive Date: 20110520
  Receipt Date: 20110516
  Transmission Date: 20111010
  Serious: Yes (Congenital Anomaly, Other)
  Sender: FDA-Public Use
  Company Number: US-PFIZER INC-2011105676

PATIENT
  Sex: Female

DRUGS (1)
  1. SERTRALINE HYDROCHLORIDE [Suspect]
     Dosage: 100 MG
     Route: 064
     Dates: start: 20100101, end: 20101201

REACTIONS (3)
  - FOOT DEFORMITY [None]
  - TALIPES [None]
  - DRUG EXPOSURE DURING PREGNANCY [None]
